FAERS Safety Report 10453045 (Version 1)
Quarter: 2014Q3

REPORT INFORMATION
  Report Type: Spontaneous
  Country: CA (occurrence: CA)
  Receive Date: 20140915
  Receipt Date: 20140915
  Transmission Date: 20150326
  Serious: Yes (Other)
  Sender: FDA-Public Use
  Company Number: CA-ELI_LILLY_AND_COMPANY-CA201409002033

PATIENT
  Age: 68 Year
  Sex: Female

DRUGS (1)
  1. CYMBALTA [Suspect]
     Active Substance: DULOXETINE HYDROCHLORIDE
     Indication: DEPRESSION
     Dosage: 30 MG, UNKNOWN
     Route: 065
     Dates: start: 20140830, end: 20140904

REACTIONS (7)
  - Erythema multiforme [Unknown]
  - Pruritus [Unknown]
  - Oral mucosal exfoliation [Unknown]
  - Hypersensitivity [Unknown]
  - Skin exfoliation [Unknown]
  - Dry skin [Unknown]
  - Rash macular [Unknown]
